FAERS Safety Report 16177758 (Version 4)
Quarter: 2020Q2

REPORT INFORMATION
  Report Type: Spontaneous
  Country: US (occurrence: US)
  Receive Date: 20190410
  Receipt Date: 20200630
  Transmission Date: 20200713
  Serious: Yes (Death, Life-Threatening, Hospitalization, Other)
  Sender: FDA-Public Use
  Company Number: US-EMD SERONO-9083004

PATIENT
  Age: 69 Year
  Sex: Male
  Weight: 72 kg

DRUGS (46)
  1. ENTRESTO [Concomitant]
     Active Substance: SACUBITRIL\VALSARTAN
     Indication: PRODUCT USED FOR UNKNOWN INDICATION
     Dosage: 49-51 MG
     Route: 048
  2. AMOXICILLIN. [Concomitant]
     Active Substance: AMOXICILLIN
     Indication: PRODUCT USED FOR UNKNOWN INDICATION
     Route: 048
  3. PANTOPRAZOLE [Concomitant]
     Active Substance: PANTOPRAZOLE
     Indication: PRODUCT USED FOR UNKNOWN INDICATION
     Dosage: PANTOPRAZOLE DR
     Route: 048
     Dates: start: 20191016
  4. CHROMIUM PICOLINATE [Concomitant]
     Active Substance: CHROMIUM PICOLINATE
     Indication: PRODUCT USED FOR UNKNOWN INDICATION
     Dosage: INJECT 10,000 UNITS INTO MUSCLE
     Route: 048
     Dates: start: 20181117
  5. NORVIR [Concomitant]
     Active Substance: RITONAVIR
     Indication: PRODUCT USED FOR UNKNOWN INDICATION
     Route: 048
  6. VITAMIN E                          /00110501/ [Concomitant]
     Active Substance: TOCOPHEROL
     Indication: PRODUCT USED FOR UNKNOWN INDICATION
     Route: 048
  7. SEROSTIM [Suspect]
     Active Substance: SOMATROPIN
     Indication: CACHEXIA
     Route: 058
     Dates: start: 201406
  8. CHORIONIC GONADOTROPIN [Concomitant]
     Active Substance: CHORIOGONADOTROPIN ALFA
     Indication: PRODUCT USED FOR UNKNOWN INDICATION
     Dosage: CHORIONIC GONADOTROPHIN HUMAN
     Route: 030
     Dates: start: 20200504, end: 202005
  9. METOPROLOL SUCCINATE. [Concomitant]
     Active Substance: METOPROLOL SUCCINATE
     Indication: PRODUCT USED FOR UNKNOWN INDICATION
     Dosage: METOPROLOL SUCCINATE XL SUSTAINED RELEASE 24 HR
     Route: 048
     Dates: start: 20200409
  10. PREVIDENT [Concomitant]
     Active Substance: SODIUM FLUORIDE
     Indication: PRODUCT USED FOR UNKNOWN INDICATION
     Dosage: PREVIDENT 5000 DRY MOUTH DENTAL GEL?PLACE ONE ON EACH TOOTH DAILY
  11. CHOLECALCIFEROL [Concomitant]
     Active Substance: CHOLECALCIFEROL
     Indication: PRODUCT USED FOR UNKNOWN INDICATION
     Route: 048
  12. GELATIN [Concomitant]
     Active Substance: GELATIN
     Indication: PRODUCT USED FOR UNKNOWN INDICATION
     Route: 048
  13. TRETINOIN. [Concomitant]
     Active Substance: TRETINOIN
     Indication: PRODUCT USED FOR UNKNOWN INDICATION
     Dosage: TO BE APPLIED TO AFFECTED AREA
     Route: 061
     Dates: start: 20170227
  14. SEROSTIM [Suspect]
     Active Substance: SOMATROPIN
     Indication: HIV WASTING SYNDROME
  15. ISOSORBIDE DINITRATE. [Concomitant]
     Active Substance: ISOSORBIDE DINITRATE
     Indication: PRODUCT USED FOR UNKNOWN INDICATION
     Route: 048
  16. FUROSEMIDE. [Concomitant]
     Active Substance: FUROSEMIDE
     Indication: PRODUCT USED FOR UNKNOWN INDICATION
     Route: 048
     Dates: start: 20200409
  17. LAMIVUDINE. [Concomitant]
     Active Substance: LAMIVUDINE
     Indication: PRODUCT USED FOR UNKNOWN INDICATION
     Route: 048
     Dates: start: 20200327
  18. DOCOSAHEXANOIC ACID W/EICOSAPENTAENOIC ACID [Concomitant]
     Active Substance: DOCONEXENT\ICOSAPENT
     Indication: PRODUCT USED FOR UNKNOWN INDICATION
     Route: 048
  19. BIOTIN [Concomitant]
     Active Substance: BIOTIN
     Indication: PRODUCT USED FOR UNKNOWN INDICATION
     Route: 048
  20. ALLEGRA [Concomitant]
     Active Substance: FEXOFENADINE HYDROCHLORIDE
     Indication: HYPERSENSITIVITY
     Route: 048
  21. CHORIONIC GONADOTROPIN [Concomitant]
     Active Substance: CHORIOGONADOTROPIN ALFA
     Indication: PRODUCT USED FOR UNKNOWN INDICATION
     Dosage: 10,000 UNITS TO BE INJECTED INTO MUSCLE
     Route: 030
  22. SEROSTIM [Suspect]
     Active Substance: SOMATROPIN
     Indication: LIPODYSTROPHY ACQUIRED
     Dosage: DISCONTINUED APPROX 05 MAY 2020
     Route: 058
     Dates: start: 201604, end: 202005
  23. CYANOCOBALAMIN. [Concomitant]
     Active Substance: CYANOCOBALAMIN
     Indication: PRODUCT USED FOR UNKNOWN INDICATION
     Dosage: 1000 MCG/ML
     Route: 030
     Dates: start: 20200512, end: 202005
  24. HYDRALAZINE [Concomitant]
     Active Substance: HYDRALAZINE HYDROCHLORIDE
     Indication: PRODUCT USED FOR UNKNOWN INDICATION
     Route: 048
     Dates: start: 20200327
  25. NITROLINGUAL [Concomitant]
     Active Substance: NITROGLYCERIN
     Indication: CHEST PAIN
     Dosage: TRANSLINGUAL SPRAY
     Dates: start: 20200113
  26. CLOPIDOGREL [Concomitant]
     Active Substance: CLOPIDOGREL BISULFATE
     Indication: PRODUCT USED FOR UNKNOWN INDICATION
     Route: 048
     Dates: start: 20191016
  27. PROBIOTIC                          /08023301/ [Concomitant]
     Active Substance: PROBIOTICS NOS
     Indication: PRODUCT USED FOR UNKNOWN INDICATION
     Dosage: 10 BILLION CELL TWICE A DAY
     Route: 048
  28. LANTUS [Concomitant]
     Active Substance: INSULIN GLARGINE
     Indication: PRODUCT USED FOR UNKNOWN INDICATION
     Dosage: LANTUS SOLOSTAR 100 UNIT/ML
     Route: 058
  29. PREZISTA [Concomitant]
     Active Substance: DARUNAVIR ETHANOLATE
     Indication: PRODUCT USED FOR UNKNOWN INDICATION
     Dosage: SWALLOW WHOLE TABLET WITH WATER OR MILK
     Route: 048
  30. LIDOCAINE AND PRILOCAINE [Concomitant]
     Active Substance: LIDOCAINE\PRILOCAINE
     Indication: PRODUCT USED FOR UNKNOWN INDICATION
     Dosage: LIDOCAINE/PRILOCAINE 2-2.5 M%?APPLY ONCE 5-10 MIN BEFORE PROCEDURE
     Route: 061
  31. TRICOR [Concomitant]
     Active Substance: FENOFIBRATE
     Indication: PRODUCT USED FOR UNKNOWN INDICATION
     Route: 048
     Dates: start: 20200113
  32. SOOLANTRA [Concomitant]
     Active Substance: IVERMECTIN
     Indication: PRODUCT USED FOR UNKNOWN INDICATION
     Dosage: APPLY EFFECTED AREA DAILY
     Route: 061
  33. UBIQUINOL CO Q10 [Concomitant]
     Active Substance: UBIQUINOL
     Indication: PRODUCT USED FOR UNKNOWN INDICATION
     Route: 048
  34. OSTEO BI-FLEX                      /01431201/ [Concomitant]
     Indication: PRODUCT USED FOR UNKNOWN INDICATION
     Dosage: 750MG-644MG-30 MG-1MG
     Route: 048
  35. ASPIRIN                            /00002701/ [Concomitant]
     Active Substance: ASPIRIN
     Indication: PRODUCT USED FOR UNKNOWN INDICATION
     Dosage: DELAYED RELEASE
     Route: 048
  36. VIBERZI [Concomitant]
     Active Substance: ELUXADOLINE
     Indication: PRODUCT USED FOR UNKNOWN INDICATION
     Route: 048
     Dates: start: 20200504, end: 202005
  37. HYDROXYTRYPTOPHAN 5 HTP [Concomitant]
     Active Substance: OXITRIPTAN
     Indication: SLEEP DISORDER
     Route: 048
  38. LIVALO [Concomitant]
     Active Substance: PITAVASTATIN CALCIUM
     Indication: PRODUCT USED FOR UNKNOWN INDICATION
     Route: 048
     Dates: start: 20200113
  39. KETOCONAZOLE. [Concomitant]
     Active Substance: KETOCONAZOLE
     Indication: PRODUCT USED FOR UNKNOWN INDICATION
     Dosage: 45 G?ON FACE
     Route: 061
     Dates: start: 20200113
  40. SYNTHROID [Concomitant]
     Active Substance: LEVOTHYROXINE SODIUM
     Indication: PRODUCT USED FOR UNKNOWN INDICATION
     Route: 048
     Dates: start: 20191016
  41. MULTIVITAMINES WITH IRON           /02170101/ [Concomitant]
     Indication: PRODUCT USED FOR UNKNOWN INDICATION
     Route: 048
  42. TESTOSTERONE CYPIONATE. [Concomitant]
     Active Substance: TESTOSTERONE CYPIONATE
     Indication: PRODUCT USED FOR UNKNOWN INDICATION
     Dosage: 200 MG/ML
     Route: 030
     Dates: start: 20200512, end: 202005
  43. FAMCICLOVIR. [Concomitant]
     Active Substance: FAMCICLOVIR
     Indication: HERPES VIRUS INFECTION
     Route: 048
  44. TIVICAY [Concomitant]
     Active Substance: DOLUTEGRAVIR SODIUM
     Indication: PRODUCT USED FOR UNKNOWN INDICATION
     Route: 048
     Dates: start: 20200327
  45. HYDROCORTISONE. [Concomitant]
     Active Substance: HYDROCORTISONE
     Indication: PRODUCT USED FOR UNKNOWN INDICATION
     Route: 061
     Dates: start: 20200113
  46. CHLORPHENIRAMINE                   /00072501/ [Concomitant]
     Active Substance: CHLORPHENIRAMINE
     Indication: HYPERSENSITIVITY
     Route: 048

REACTIONS (9)
  - Ventricular arrhythmia [Unknown]
  - Acute kidney injury [Fatal]
  - Cardiac arrest [Fatal]
  - Acute myocardial infarction [Unknown]
  - Cardiogenic shock [Unknown]
  - Post procedural complication [Unknown]
  - Condition aggravated [Fatal]
  - Ischaemic cardiomyopathy [Fatal]
  - Cardiac failure [Fatal]

NARRATIVE: CASE EVENT DATE: 202005
